FAERS Safety Report 5352621-X (Version None)
Quarter: 2007Q2

REPORT INFORMATION
  Report Type: 
  Country: None (occurrence: None)
  Receive Date: 20070611
  Receipt Date: 20070529
  Transmission Date: 20071010
  Serious: Yes (Other)
  Sender: FDA-Public Use
  Company Number: CA-ELI_LILLY_AND_COMPANY-CA200706000643

PATIENT
  Age: 47 Year
  Sex: Female

DRUGS (1)
  1. GEMCITABINE HCL [Suspect]
     Dosage: 1335 MG, UNK

REACTIONS (4)
  - APNOEA [None]
  - BRONCHOSPASM [None]
  - CHEST PAIN [None]
  - LOSS OF CONSCIOUSNESS [None]
